FAERS Safety Report 9780108 (Version 2)
Quarter: 2014Q1

REPORT INFORMATION
  Report Type: Spontaneous
  Country: FR (occurrence: FR)
  Receive Date: 20131223
  Receipt Date: 20140129
  Transmission Date: 20141002
  Serious: Yes (Hospitalization, Other)
  Sender: FDA-Public Use
  Company Number: FR-GILEAD-2013-0090453

PATIENT
  Age: 43 Year
  Sex: Male
  Weight: 79 kg

DRUGS (5)
  1. TRUVADA [Suspect]
     Indication: PRODUCT USED FOR UNKNOWN INDICATION
     Dosage: 1 DF, UNK
     Route: 048
     Dates: start: 20080612
  2. REYATAZ [Suspect]
     Dosage: 300 MG, QD
     Dates: start: 20080612
  3. NORVIR [Suspect]
     Dosage: 200 MG, QD
     Route: 048
     Dates: start: 20080612
  4. PREZISTA [Suspect]
     Dosage: 600 MG, UNK
     Route: 048
     Dates: start: 20080612
  5. TMC 125 [Suspect]
     Dosage: 400 MG, UNK
     Route: 048
     Dates: start: 20080612

REACTIONS (1)
  - Tendon rupture [Not Recovered/Not Resolved]
